FAERS Safety Report 23687710 (Version 1)
Quarter: 2024Q1

REPORT INFORMATION
  Report Type: Spontaneous
  Country: GB (occurrence: GB)
  Receive Date: 20240329
  Receipt Date: 20240329
  Transmission Date: 20240409
  Serious: Yes (Other)
  Sender: FDA-Public Use
  Company Number: None

PATIENT
  Age: 63 Year
  Sex: Male
  Weight: 104 kg

DRUGS (6)
  1. RIMEGEPANT [Suspect]
     Active Substance: RIMEGEPANT
     Dosage: UNK
     Route: 048
  2. UMECLIDINIUM BROMIDE\VILANTEROL TRIFENATATE [Concomitant]
     Active Substance: UMECLIDINIUM BROMIDE\VILANTEROL TRIFENATATE
     Dosage: 1 DF, 1X/DAY
     Route: 055
     Dates: start: 20191014
  3. OMEPRAZOLE [Concomitant]
     Active Substance: OMEPRAZOLE
     Dosage: 1 DF, 2X/DAY
     Dates: start: 20220610
  4. PIROXICAM [Concomitant]
     Active Substance: PIROXICAM
     Dosage: FOUR TIMES DAILY TO KNEES
     Route: 061
     Dates: start: 20230223
  5. ALBUTEROL [Concomitant]
     Active Substance: ALBUTEROL
     Dosage: 2 DF
     Route: 055
     Dates: start: 20230420
  6. ZOLMITRIPTAN [Concomitant]
     Active Substance: ZOLMITRIPTAN
     Dosage: AS DIRECTED
     Dates: start: 20170213

REACTIONS (1)
  - Lip swelling [Recovered/Resolved]
